FAERS Safety Report 15242949 (Version 1)
Quarter: 2018Q3

REPORT INFORMATION
  Report Type: Report from Study
  Country: CA (occurrence: CA)
  Receive Date: 20180806
  Receipt Date: 20180806
  Transmission Date: 20181010
  Serious: Yes (Hospitalization)
  Sender: FDA-Public Use
  Company Number: CA-JNJFOC-20180607132

PATIENT
  Age: 47 Year
  Sex: Female

DRUGS (1)
  1. STELARA [Suspect]
     Active Substance: USTEKINUMAB
     Indication: CROHN^S DISEASE
     Route: 058

REACTIONS (6)
  - Frequent bowel movements [Unknown]
  - General physical health deterioration [Unknown]
  - Arthritis [Unknown]
  - Hip arthroplasty [Unknown]
  - Abdominal pain [Unknown]
  - Intestinal resection [Unknown]

NARRATIVE: CASE EVENT DATE: 20180702
